FAERS Safety Report 4347642-X (Version None)
Quarter: 2004Q2

REPORT INFORMATION
  Report Type: 
  Country: None (occurrence: None)
  Receive Date: 20040422
  Receipt Date: 20040409
  Transmission Date: 20050107
  Serious: Yes (Hospitalization, Disabling, Other)
  Sender: FDA-Public Use
  Company Number: 2004024490

PATIENT
  Age: 42 Year
  Sex: Male

DRUGS (5)
  1. VISTARIL [Suspect]
     Indication: PAIN MANAGEMENT
     Dosage: SUBCUTANEOUS
     Route: 058
     Dates: end: 20000613
  2. GABAPENTIN [Concomitant]
  3. MEPERIDINE HYDROCHLORIDE [Concomitant]
  4. OXYCODONE HCL [Concomitant]
  5. TIZANIDINE HCL [Concomitant]

REACTIONS (19)
  - BACK PAIN [None]
  - COMPRESSION FRACTURE [None]
  - CONVULSION [None]
  - COUGH [None]
  - DYSPNOEA [None]
  - EMBOLIA CUTIS MEDICAMENTOSA [None]
  - GAIT DISTURBANCE [None]
  - IATROGENIC INJURY [None]
  - INJECTION SITE BURNING [None]
  - INJECTION SITE PAIN [None]
  - MEDICATION ERROR [None]
  - MUSCLE ATROPHY [None]
  - MUSCLE CRAMP [None]
  - NECROSIS [None]
  - PAIN [None]
  - PERONEAL NERVE PALSY [None]
  - PNEUMONIA [None]
  - SWELLING [None]
  - WHEEZING [None]
